FAERS Safety Report 23967724 (Version 7)
Quarter: 2024Q4

REPORT INFORMATION
  Report Type: Spontaneous
  Country: US (occurrence: US)
  Receive Date: 20240612
  Receipt Date: 20241125
  Transmission Date: 20250114
  Serious: Yes (Hospitalization)
  Sender: BRISTOL-MYERS SQUIBB COMPANY
  Company Number: US-BRISTOL-MYERS SQUIBB COMPANY-2024-091519

PATIENT
  Age: 74 Year
  Sex: Male

DRUGS (4)
  1. LENALIDOMIDE [Suspect]
     Active Substance: LENALIDOMIDE
     Indication: Monoclonal gammopathy
     Dosage: TAKE 1 CAPSULE WHOLE BY MOUTH WITH FULL GLASS OF WATER AT SAME TIME EVERY DAY ON DAYS 1-14 OF EACH 2
     Route: 048
  2. LENALIDOMIDE [Suspect]
     Active Substance: LENALIDOMIDE
     Dosage: TAKE 1 CAPSULE WHOLE BY MOUTH WITH WATER AT SAME TIME EVERY DAY ON DAYS 1-14 OF EACH 21 DAY CYCLE
     Route: 048
  3. LENALIDOMIDE [Suspect]
     Active Substance: LENALIDOMIDE
     Dosage: FREQUENCY: TAKE 1 CAPSULE BY MOUTH WHOLE WITH FULL GLASS OF WATER AT THE SAME TIME DAILY ON DAYS 1-1
     Route: 048
  4. LENALIDOMIDE [Suspect]
     Active Substance: LENALIDOMIDE
     Dosage: FREQUENCY: TAKE 1 WHOLE CAPSULE BY MOUTH WITH A FULL GLASS OF WATER AT THE SAME TIME EVERY DAY ON DA
     Route: 048

REACTIONS (4)
  - Cardiac disorder [Recovered/Resolved]
  - Product dose omission issue [Unknown]
  - Hypotension [Not Recovered/Not Resolved]
  - Pigmentation disorder [Recovered/Resolved]
